FAERS Safety Report 9467088 (Version 1)
Quarter: 2013Q3

REPORT INFORMATION
  Report Type: Spontaneous
  Country: DE (occurrence: DE)
  Receive Date: 20130820
  Receipt Date: 20130820
  Transmission Date: 20140515
  Serious: Yes (Hospitalization, Other)
  Sender: FDA-Public Use
  Company Number: DE-ACTAVIS-2013-14751

PATIENT
  Sex: 0

DRUGS (5)
  1. LAMOTRIGINE (UNKNOWN) [Suspect]
     Indication: EPILEPSY
     Dosage: DOSAGE INITIALLY 25 MG/D; TAKEN ORALLY BY THE MOTHER
     Route: 064
     Dates: start: 20080211, end: 20081017
  2. LAMOTRIGINE (UNKNOWN) [Suspect]
     Dosage: 250 MG/D IN THE END
     Route: 064
  3. MORPHINE SULFATE (UNKNOWN) [Suspect]
     Indication: PAIN
     Dosage: 12 MICROGRAM
     Route: 064
     Dates: start: 20080926, end: 20081015
  4. EUTHYROX [Concomitant]
     Indication: HYPOTHYROIDISM
     Dosage: 25 MICROGRAM
     Route: 065
     Dates: start: 20080211, end: 20081017
  5. FOLIC ACID ALMUS [Concomitant]
     Indication: PROPHYLAXIS OF NEURAL TUBE DEFECT
     Dosage: 800 MG, DAILY
     Route: 065
     Dates: start: 20080211, end: 20081017

REACTIONS (3)
  - Feeding disorder neonatal [Recovered/Resolved]
  - Neonatal tachypnoea [Recovered/Resolved]
  - Hypoglycaemia neonatal [Recovered/Resolved]
